FAERS Safety Report 7309992-4 (Version None)
Quarter: 2011Q1

REPORT INFORMATION
  Report Type: 
  Country: None (occurrence: None)
  Receive Date: 20110224
  Receipt Date: 20100823
  Transmission Date: 20110831
  Serious: No
  Sender: FDA-Public Use
  Company Number: US-BAYER-201033713NA

PATIENT
  Sex: Female

DRUGS (1)
  1. MIRENA [Suspect]
     Indication: CONTRACEPTION
     Dosage: 20 MCG/24HR, UNK
     Route: 015
     Dates: start: 20100629, end: 20100822

REACTIONS (4)
  - VAGINAL HAEMORRHAGE [None]
  - ABDOMINAL PAIN [None]
  - DEVICE EXPULSION [None]
  - PROCEDURAL PAIN [None]
